FAERS Safety Report 14272749 (Version 1)
Quarter: 2017Q4

REPORT INFORMATION
  Report Type: Spontaneous
  Country: US (occurrence: US)
  Receive Date: 20171211
  Receipt Date: 20171211
  Transmission Date: 20180321
  Serious: Yes (Hospitalization, Other)
  Sender: FDA-Public Use
  Company Number: US-OTSUKA-2017_018104

PATIENT
  Sex: Female

DRUGS (1)
  1. ABILIFY [Suspect]
     Active Substance: ARIPIPRAZOLE
     Indication: POST-TRAUMATIC STRESS DISORDER
     Dosage: 30 MG, QD
     Route: 065
     Dates: start: 2010, end: 20170301

REACTIONS (14)
  - Gambling [Recovered/Resolved]
  - Suicide attempt [Recovered/Resolved]
  - Stress [Unknown]
  - Maternal exposure during pregnancy [Unknown]
  - Impulsive behaviour [Recovered/Resolved]
  - Suicidal ideation [Recovered/Resolved]
  - Unintended pregnancy [Unknown]
  - Obsessive-compulsive disorder [Recovered/Resolved]
  - Hypersexuality [Recovered/Resolved]
  - Emotional distress [Unknown]
  - Weight increased [Unknown]
  - Product use issue [Unknown]
  - Product use in unapproved indication [Unknown]
  - Anxiety [Unknown]
